FAERS Safety Report 20737804 (Version 1)
Quarter: 2022Q2

REPORT INFORMATION
  Report Type: Spontaneous
  Country: US (occurrence: None)
  Receive Date: 20220422
  Receipt Date: 20220422
  Transmission Date: 20220720
  Serious: Yes (Other)
  Sender: FDA-Public Use
  Company Number: 2022A153551

PATIENT
  Sex: Female

DRUGS (1)
  1. FASENRA [Suspect]
     Active Substance: BENRALIZUMAB
     Dosage: PATIENT HAS TAKEN 3 DOSES OF FASENRA
     Route: 058

REACTIONS (1)
  - Angioedema [Unknown]
